FAERS Safety Report 8046596-2 (Version None)
Quarter: 2012Q1

REPORT INFORMATION
  Report Type: 
  Country: None (occurrence: None)
  Receive Date: 20120113
  Receipt Date: 20120109
  Transmission Date: 20120608
  Serious: Yes (Hospitalization, Other)
  Sender: FDA-Public Use
  Company Number: NO-AMGEN-NORSP2011059896

PATIENT
  Age: 70 Year
  Sex: Male

DRUGS (8)
  1. OXYCONTIN [Concomitant]
     Indication: PAIN
     Dosage: UNK UNK, BID
  2. CALCIGRAN FORTE [Concomitant]
     Indication: METASTASES TO BONE
  3. ZOLADEX [Concomitant]
     Indication: PROSTATE CANCER
     Dosage: UNK
     Route: 030
  4. LYRICA [Concomitant]
     Indication: PAIN
     Dosage: 300 UNK, UNK
  5. XGEVA [Suspect]
  6. XGEVA [Suspect]
     Indication: METASTASES TO BONE
     Dosage: 120 MG, QMO
     Dates: start: 20111012, end: 20111120
  7. NALOXONE HCL [Concomitant]
     Indication: PAIN
     Dosage: UNK
     Route: 048
  8. METADON                            /00068901/ [Concomitant]
     Indication: PAIN
     Dosage: 5 UNK, UNK

REACTIONS (2)
  - RASH [None]
  - DYSPNOEA [None]
